FAERS Safety Report 7404493-7 (Version None)
Quarter: 2011Q2

REPORT INFORMATION
  Report Type: 
  Country: None (occurrence: None)
  Receive Date: 20110408
  Receipt Date: 20110405
  Transmission Date: 20111010
  Serious: Yes (Hospitalization, Other)
  Sender: FDA-Public Use
  Company Number: US-PFIZER INC-2005104601

PATIENT
  Sex: Female

DRUGS (2)
  1. NEURONTIN [Suspect]
     Dosage: 100 MG, 2X/DAY
     Route: 048
     Dates: start: 20030916
  2. NEURONTIN [Suspect]
     Indication: PAIN
     Dosage: 300 MG, 2X/DAY
     Route: 048
     Dates: start: 20000606, end: 20001201

REACTIONS (7)
  - DRUG INEFFECTIVE [None]
  - DISTURBANCE IN ATTENTION [None]
  - AGITATION [None]
  - COGNITIVE DISORDER [None]
  - INTENTIONAL SELF-INJURY [None]
  - THINKING ABNORMAL [None]
  - SUICIDE ATTEMPT [None]
